FAERS Safety Report 10024521 (Version 2)
Quarter: 2014Q1

REPORT INFORMATION
  Report Type: Spontaneous
  Country: US (occurrence: US)
  Receive Date: 20140320
  Receipt Date: 20140320
  Transmission Date: 20141002
  Serious: No
  Sender: FDA-Public Use
  Company Number: US-ENDO PHARMACEUTICALS INC.-OPCR20130188

PATIENT
  Age: 46 Year
  Sex: Male
  Weight: 62.65 kg

DRUGS (3)
  1. OPANA ER 30MG [Suspect]
     Indication: PAIN
     Route: 048
     Dates: end: 201304
  2. OPANA ER 30MG [Suspect]
     Dosage: UNKNOWN
     Route: 048
     Dates: start: 201304, end: 201304
  3. OXYCODONE/ACETAMINOPHEN 10MG/325MG [Concomitant]
     Indication: PRODUCT USED FOR UNKNOWN INDICATION
     Dosage: 10/325 MG
     Route: 048
     Dates: end: 201304

REACTIONS (6)
  - Anxiety [Recovering/Resolving]
  - Condition aggravated [Recovering/Resolving]
  - Feeling jittery [Recovering/Resolving]
  - Abdominal pain upper [Recovering/Resolving]
  - Dyspepsia [Recovering/Resolving]
  - Constipation [Recovering/Resolving]
